FAERS Safety Report 8432201-X (Version None)
Quarter: 2012Q2

REPORT INFORMATION
  Report Type: 
  Country: None (occurrence: None)
  Receive Date: 20120613
  Receipt Date: 20120601
  Transmission Date: 20120825
  Serious: Yes (Other)
  Sender: FDA-Public Use
  Company Number: AU-BRISTOL-MYERS SQUIBB COMPANY-16659617

PATIENT
  Age: 63 Year
  Sex: Female
  Weight: 80 kg

DRUGS (6)
  1. ORENCIA [Suspect]
     Indication: RHEUMATOID ARTHRITIS
     Dosage: INTER UNTILL 1JUN12 LAST DOSE ON 23APR12
     Route: 042
     Dates: start: 20080522
  2. PREDNISOLONE [Concomitant]
     Route: 048
  3. MOBIC [Concomitant]
     Route: 048
  4. CALCIUM CARBONATE [Concomitant]
     Route: 048
  5. ACETAMINOPHEN AND CODEINE PHOSPHATE [Concomitant]
     Route: 048
  6. VITAMIN D [Concomitant]
     Route: 048

REACTIONS (2)
  - WOUND DEHISCENCE [None]
  - OSTEOARTHRITIS [None]
